FAERS Safety Report 12663870 (Version 1)
Quarter: 2016Q3

REPORT INFORMATION
  Report Type: Spontaneous
  Country: US (occurrence: US)
  Receive Date: 20160818
  Receipt Date: 20160818
  Transmission Date: 20161109
  Serious: No
  Sender: FDA-Public Use
  Company Number: US-TEVA-680441ACC

PATIENT
  Age: 21 Year
  Sex: Female
  Weight: 70.37 kg

DRUGS (3)
  1. PLAN B ONE-STEP [Suspect]
     Active Substance: LEVONORGESTREL
     Indication: POST COITAL CONTRACEPTION
     Dates: start: 20160716, end: 20160716
  2. AMOXICILLIN. [Concomitant]
     Active Substance: AMOXICILLIN
     Indication: WISDOM TEETH REMOVAL
     Dates: start: 20160714, end: 20160714
  3. DIFLUCAN [Concomitant]
     Active Substance: FLUCONAZOLE

REACTIONS (3)
  - Nausea [Unknown]
  - Dizziness [Not Recovered/Not Resolved]
  - Vaginal haemorrhage [Not Recovered/Not Resolved]

NARRATIVE: CASE EVENT DATE: 20160720
